FAERS Safety Report 17147508 (Version 2)
Quarter: 2020Q1

REPORT INFORMATION
  Report Type: Report from Study
  Country: AU (occurrence: AU)
  Receive Date: 20191212
  Receipt Date: 20200213
  Transmission Date: 20200409
  Serious: Yes (Hospitalization)
  Sender: FDA-Public Use
  Company Number: AU-ROCHE-2495322

PATIENT
  Age: 78 Year
  Sex: Female
  Weight: 70 kg

DRUGS (10)
  1. VISMODEGIB. [Suspect]
     Active Substance: VISMODEGIB
     Indication: NEOPLASM MALIGNANT
     Route: 048
     Dates: start: 20181119, end: 20191128
  2. VITAMIN B [Concomitant]
     Active Substance: VITAMIN B
     Indication: NUTRITIONAL SUPPLEMENTATION
     Route: 048
  3. PANADOL [Concomitant]
     Active Substance: ACETAMINOPHEN
     Route: 048
  4. VENTOLIN [Concomitant]
     Active Substance: ALBUTEROL SULFATE
     Dosage: INHALATION
     Route: 065
  5. TILADE [Concomitant]
     Active Substance: NEDOCROMIL SODIUM
     Dosage: INHALATION
     Route: 065
  6. VITAMIN D3 [Concomitant]
     Active Substance: CHOLECALCIFEROL
     Indication: NUTRITIONAL SUPPLEMENTATION
     Route: 048
  7. CENTRUM SELECT 50+ [Concomitant]
     Active Substance: VITAMINS
     Indication: NUTRITIONAL SUPPLEMENTATION
     Route: 048
  8. XARELTO [Concomitant]
     Active Substance: RIVAROXABAN
     Route: 048
  9. EZETROL [Concomitant]
     Active Substance: EZETIMIBE
     Route: 048
  10. OROXINE [Concomitant]
     Active Substance: LEVOTHYROXINE SODIUM
     Route: 048

REACTIONS (1)
  - Pneumonia [Recovered/Resolved]

NARRATIVE: CASE EVENT DATE: 20191129
